FAERS Safety Report 20850235 (Version 1)
Quarter: 2022Q2

REPORT INFORMATION
  Report Type: Spontaneous
  Country: US (occurrence: None)
  Receive Date: 20220518
  Receipt Date: 20220518
  Transmission Date: 20220721
  Serious: No
  Sender: FDA-Public Use
  Company Number: None

PATIENT
  Age: 48 Year
  Sex: Female
  Weight: 76.5 kg

DRUGS (15)
  1. FLUCONAZOLE [Suspect]
     Active Substance: FLUCONAZOLE
     Indication: Fungal infection
     Dosage: FREQUENCY : DAILY;?
     Route: 048
     Dates: start: 20220517, end: 20220517
  2. PLAQUENIL [Concomitant]
     Active Substance: HYDROXYCHLOROQUINE SULFATE
  3. LEVOTHYROXINE [Concomitant]
     Active Substance: LEVOTHYROXINE
  4. modafinal [Concomitant]
  5. TELMISARTAN [Concomitant]
     Active Substance: TELMISARTAN
  6. PILOCARPINE [Concomitant]
     Active Substance: PILOCARPINE
  7. METFORMIN [Concomitant]
     Active Substance: METFORMIN HYDROCHLORIDE
  8. TRAZODONE [Concomitant]
     Active Substance: TRAZODONE HYDROCHLORIDE
  9. burproprion [Concomitant]
  10. FISH OIL [Concomitant]
     Active Substance: FISH OIL
  11. TEA [Concomitant]
     Active Substance: TEA LEAF
  12. VITAMIN D3 [Concomitant]
     Active Substance: CHOLECALCIFEROL
  13. HERBALS [Concomitant]
     Active Substance: HERBALS
  14. PRASTERONE [Concomitant]
     Active Substance: PRASTERONE
  15. MAGNESIUM [Concomitant]
     Active Substance: MAGNESIUM

REACTIONS (7)
  - Pruritus [None]
  - Lip swelling [None]
  - Lip erythema [None]
  - Contusion [None]
  - Nonspecific reaction [None]
  - Treatment noncompliance [None]
  - Memory impairment [None]

NARRATIVE: CASE EVENT DATE: 20220517
